FAERS Safety Report 9373057 (Version 1)
Quarter: 2013Q2

REPORT INFORMATION
  Report Type: Spontaneous
  Country: US (occurrence: US)
  Receive Date: 20130627
  Receipt Date: 20130627
  Transmission Date: 20140414
  Serious: Yes (Other)
  Sender: FDA-Public Use
  Company Number: US-AMGEN-USASP2013044474

PATIENT
  Age: 90 Year
  Sex: Male

DRUGS (11)
  1. ARANESP [Suspect]
     Indication: NEPHROGENIC ANAEMIA
  2. MICARDIS [Concomitant]
  3. OMEPRAZOLE [Concomitant]
  4. SERAX                              /00040901/ [Concomitant]
  5. DOXAZOSIN [Concomitant]
  6. ATENOLOL [Concomitant]
  7. SYNTHROID [Concomitant]
  8. NITROSTAT [Concomitant]
  9. TRIAMTERENE [Concomitant]
  10. B-COMPLEX                          /00003501/ [Concomitant]
  11. FOLIC ACID [Concomitant]

REACTIONS (4)
  - Lumbar spinal stenosis [Unknown]
  - Arthropathy [Unknown]
  - Disability [Unknown]
  - Blood pressure abnormal [Unknown]
